FAERS Safety Report 9513304 (Version 1)
Quarter: 2013Q1

REPORT INFORMATION
  Report Type: Spontaneous
  Country: US (occurrence: None)
  Receive Date: 20130305
  Receipt Date: 20130305
  Transmission Date: 20140127
  Serious: Yes (Hospitalization, Other)
  Sender: FDA-Public Use
  Company Number: 163-21880-12042472

PATIENT
  Age: 39 Year
  Sex: Female

DRUGS (21)
  1. REVLIMID [Suspect]
     Indication: PLASMA CELL MYELOMA
     Dosage: X 21 DAYS
     Route: 048
     Dates: start: 20100310
  2. AMBIEN [Concomitant]
  3. MULTIVITAMINS [Concomitant]
  4. BABY ASPIRIN [Concomitant]
  5. OMEGA 3 [Concomitant]
  6. BENZONATATE [Concomitant]
  7. OXYCODONE [Concomitant]
  8. CENTRUM [Concomitant]
  9. PROTONIX [Concomitant]
  10. FLAXSEED OIL [Concomitant]
  11. SOMA [Concomitant]
  12. ZOMETA [Concomitant]
  13. TYLENOL [Concomitant]
  14. HEPARIN [Concomitant]
  15. ZOLPIDEM [Concomitant]
  16. IRON [Concomitant]
  17. VITAMIN B [Concomitant]
  18. ZITHROMAX [Concomitant]
  19. LOVENOX [Concomitant]
  20. VITAMIN C [Concomitant]
  21. VITAMIN D [Concomitant]

REACTIONS (2)
  - Pneumonia [None]
  - Osteolysis [None]
